FAERS Safety Report 4874396-0 (Version None)
Quarter: 2005Q4

REPORT INFORMATION
  Report Type: 
  Country: None (occurrence: None)
  Receive Date: 20051201
  Receipt Date: 20050810
  Transmission Date: 20060501
  Serious: No
  Sender: FDA-Public Use
  Company Number: 2005PV001044

PATIENT
  Age: 73 Year
  Sex: Male
  Weight: 112.0385 kg

DRUGS (12)
  1. BYETTA [Suspect]
     Indication: DIABETES MELLITUS NON-INSULIN-DEPENDENT
     Dosage: 5 MCG; BID; SC
     Route: 058
     Dates: start: 20050709
  2. QUINAPRIL [Concomitant]
  3. ACIPHEX [Concomitant]
  4. ACTONEL [Concomitant]
  5. AMARYL [Concomitant]
  6. ASPIRIN [Concomitant]
  7. AVANDIA [Concomitant]
  8. DILTIAZEM HCL [Concomitant]
  9. DOXAZOSIN [Concomitant]
  10. ZOCOR [Concomitant]
  11. HYDROCHLORIATHIAZIDE [Concomitant]
  12. METFORMIN [Concomitant]

REACTIONS (8)
  - ABDOMINAL DISTENSION [None]
  - DECREASED APPETITE [None]
  - DIZZINESS [None]
  - ERUCTATION [None]
  - HEADACHE [None]
  - MALAISE [None]
  - VOMITING [None]
  - WEIGHT DECREASED [None]
